FAERS Safety Report 7046469-8 (Version None)
Quarter: 2010Q4

REPORT INFORMATION
  Report Type: 
  Country: None (occurrence: None)
  Receive Date: 20101014
  Receipt Date: 20091218
  Transmission Date: 20110411
  Serious: No
  Sender: FDA-Public Use
  Company Number: US-ABBOTT-09P-163-0616119-00

PATIENT
  Sex: Female
  Weight: 51.5 kg

DRUGS (1)
  1. CALCIJEX [Suspect]
     Indication: HYPERPARATHYROIDISM
     Dosage: WITH EVERY TREATMENT
     Route: 042
     Dates: end: 20091202

REACTIONS (2)
  - BLOOD PARATHYROID HORMONE INCREASED [None]
  - DRUG INEFFECTIVE [None]
